FAERS Safety Report 10898959 (Version 1)
Quarter: 2015Q1

REPORT INFORMATION
  Report Type: Spontaneous
  Country: BR (occurrence: BR)
  Receive Date: 20150309
  Receipt Date: 20150309
  Transmission Date: 20150721
  Serious: Yes (Other)
  Sender: FDA-Public Use
  Company Number: ALCN2014BR007314

PATIENT
  Sex: Male

DRUGS (1)
  1. DUOTRAV [BAC] [Suspect]
     Active Substance: TIMOLOL\TRAVOPROST
     Indication: GLAUCOMA
     Dosage: 1 GTT, BID
     Route: 047

REACTIONS (4)
  - Malaise [Unknown]
  - Eye disorder [Unknown]
  - Mydriasis [Unknown]
  - Dementia Alzheimer^s type [Unknown]
